FAERS Safety Report 4611012-7 (Version None)
Quarter: 2005Q1

REPORT INFORMATION
  Report Type: 
  Country: None (occurrence: None)
  Receive Date: 20050316
  Receipt Date: 20050316
  Transmission Date: 20050727
  Serious: Yes (Other)
  Sender: FDA-Public Use
  Company Number: None

PATIENT
  Sex: Female
  Weight: 59.5 kg

DRUGS (1)
  1. PENTOSTATIN 4MG/M2 INTRAVENOUS EVERY 2 WEEKS. [Suspect]
     Dosage: 4MG/M2 INTRAVENOUS EVERY 2 WEEKS
     Route: 042
     Dates: start: 20050202, end: 20050202

REACTIONS (1)
  - HEADACHE [None]
